FAERS Safety Report 7334771-1 (Version None)
Quarter: 2011Q1

REPORT INFORMATION
  Report Type: 
  Country: None (occurrence: None)
  Receive Date: 20110307
  Receipt Date: 20110222
  Transmission Date: 20110831
  Serious: Yes (Hospitalization)
  Sender: FDA-Public Use
  Company Number: PHHY2010LT84214

PATIENT
  Age: 27 Year
  Sex: Male

DRUGS (2)
  1. LEPONEX [Suspect]
     Dosage: 10 OR 20 TABLETS
  2. PARKOPAN [Concomitant]

REACTIONS (2)
  - SUICIDE ATTEMPT [None]
  - INTENTIONAL OVERDOSE [None]
